FAERS Safety Report 21713567 (Version 1)
Quarter: 2022Q4

REPORT INFORMATION
  Report Type: Spontaneous
  Country: US (occurrence: US)
  Receive Date: 20221212
  Receipt Date: 20221212
  Transmission Date: 20230113
  Serious: Yes (Hospitalization)
  Sender: FDA-Public Use
  Company Number: US-AMERICAN REGENT INC-2021003112

PATIENT
  Age: 46 Year
  Sex: Male
  Weight: 108.5 kg

DRUGS (3)
  1. VENOFER [Suspect]
     Active Substance: IRON SUCROSE
     Indication: Iron deficiency anaemia
     Dosage: 50 MILLIGRAM, SINGLE
     Dates: start: 20211101, end: 20211101
  2. VENOFER [Suspect]
     Active Substance: IRON SUCROSE
     Dosage: 50 MILLIGRAM, SINGLE
     Dates: start: 20211108, end: 20211108
  3. VENOFER [Suspect]
     Active Substance: IRON SUCROSE
     Dosage: 50 MILLIGRAM, ONCE
     Dates: start: 20211109, end: 20211109

REACTIONS (1)
  - Drug hypersensitivity [Recovered/Resolved]

NARRATIVE: CASE EVENT DATE: 20211109
